FAERS Safety Report 24346211 (Version 1)
Quarter: 2024Q3

REPORT INFORMATION
  Report Type: Spontaneous
  Country: CA (occurrence: CA)
  Receive Date: 20240921
  Receipt Date: 20240921
  Transmission Date: 20241017
  Serious: Yes (Hospitalization)
  Sender: ROCHE
  Company Number: CA-002147023-NVSC2024CA182314

PATIENT
  Age: 60 Year
  Sex: Female

DRUGS (4)
  1. CEFTRIAXONE SODIUM [Suspect]
     Active Substance: CEFTRIAXONE SODIUM
     Indication: Product used for unknown indication
     Dosage: UNK
     Route: 065
  2. OMALIZUMAB [Suspect]
     Active Substance: OMALIZUMAB
     Indication: Product used for unknown indication
     Dosage: 150 MG
     Route: 065
  3. OMALIZUMAB [Suspect]
     Active Substance: OMALIZUMAB
     Dosage: 150 MG
     Route: 065
  4. TAMIFLU [Suspect]
     Active Substance: OSELTAMIVIR PHOSPHATE
     Indication: Product used for unknown indication
     Dosage: UNK
     Route: 065

REACTIONS (25)
  - Asthma [Unknown]
  - Blood lactic acid increased [Unknown]
  - Blood potassium decreased [Unknown]
  - Breath sounds abnormal [Unknown]
  - Chest X-ray abnormal [Unknown]
  - Chest discomfort [Unknown]
  - Cough [Unknown]
  - Dyspnoea [Unknown]
  - Ear pruritus [Unknown]
  - Eosinophilia [Unknown]
  - Eye pruritus [Unknown]
  - Full blood count abnormal [Unknown]
  - Lacrimation increased [Unknown]
  - Lung disorder [Unknown]
  - Nasal congestion [Unknown]
  - Nasal polyps [Unknown]
  - Platelet count increased [Unknown]
  - Pulmonary function test abnormal [Unknown]
  - Rhinitis allergic [Unknown]
  - Rhinorrhoea [Unknown]
  - Sneezing [Unknown]
  - Upper-airway cough syndrome [Unknown]
  - Urticaria [Unknown]
  - Vasculitis [Unknown]
  - Wheezing [Unknown]
